FAERS Safety Report 6952447-7 (Version None)
Quarter: 2010Q3

REPORT INFORMATION
  Report Type: 
  Country: None (occurrence: None)
  Receive Date: 20100829
  Receipt Date: 20100603
  Transmission Date: 20110219
  Serious: No
  Sender: FDA-Public Use
  Company Number: US-ABBOTT-10P-163-0642787-00

PATIENT
  Sex: Male

DRUGS (7)
  1. NIASPAN [Suspect]
     Indication: PRODUCT USED FOR UNKNOWN INDICATION
     Dates: start: 20100410, end: 20100412
  2. UNKNOWN GLAUCOMA MEDICATION [Concomitant]
     Indication: GLAUCOMA
  3. UNKNOWN CHOLESTEROL MEDICATION [Concomitant]
     Indication: BLOOD CHOLESTEROL INCREASED
  4. UNKNOWN LIPID MEDICATION [Concomitant]
     Indication: HYPERLIPIDAEMIA
  5. UNKNOWN BONE DENSITY MEDICATION [Concomitant]
     Indication: BONE DENSITY ABNORMAL
  6. BONIVA [Concomitant]
     Indication: PRODUCT USED FOR UNKNOWN INDICATION
  7. TRILIPIX [Concomitant]
     Indication: PRODUCT USED FOR UNKNOWN INDICATION

REACTIONS (3)
  - FLUSHING [None]
  - JOINT SWELLING [None]
  - PRURITUS [None]
